FAERS Safety Report 6935900-1 (Version None)
Quarter: 2010Q3

REPORT INFORMATION
  Report Type: 
  Country: None (occurrence: None)
  Receive Date: 20100816
  Receipt Date: 20090901
  Transmission Date: 20110219
  Serious: Yes (Other)
  Sender: FDA-Public Use
  Company Number: US-WYE-H10823009

PATIENT
  Age: 52 Year
  Sex: Female
  Weight: 72.64 kg

DRUGS (6)
  1. TYGACIL [Suspect]
     Dosage: 50 MG 2X PER 1 DAY INTRAVENOUS
     Route: 042
     Dates: start: 20090820, end: 20090822
  2. LEVAQUIN [Concomitant]
  3. XOPENEX [Concomitant]
  4. AVALIDE [Concomitant]
  5. NEXIUM [Concomitant]
  6. LORATADINE [Concomitant]

REACTIONS (1)
  - MENTAL STATUS CHANGES [None]
